FAERS Safety Report 6609793-6 (Version None)
Quarter: 2010Q1

REPORT INFORMATION
  Report Type: 
  Country: None (occurrence: None)
  Receive Date: 20100302
  Receipt Date: 20100212
  Transmission Date: 20100710
  Serious: Yes (Hospitalization)
  Sender: FDA-Public Use
  Company Number: DE-AMGEN-KDC395453

PATIENT
  Sex: Female

DRUGS (9)
  1. NEUPOGEN [Suspect]
     Indication: DRUG USE FOR UNKNOWN INDICATION
  2. DOCETAXEL [Suspect]
     Route: 042
     Dates: start: 20091105, end: 20091203
  3. BEVACIZUMAB [Concomitant]
  4. EVEROLIMUS [Concomitant]
  5. LAPATINIB [Concomitant]
  6. CIPROFLOXACIN [Concomitant]
     Dates: start: 20091201, end: 20091203
  7. EPIRUBICIN [Concomitant]
     Route: 042
     Dates: start: 20090813
  8. CYCLOPHOSPHAMIDE [Concomitant]
     Route: 042
     Dates: start: 20090813
  9. NEUPOGEN [Concomitant]
     Dates: start: 20091130, end: 20091204

REACTIONS (2)
  - ALVEOLITIS [None]
  - PNEUMONIA PRIMARY ATYPICAL [None]
